FAERS Safety Report 5122901-1 (Version None)
Quarter: 2006Q4

REPORT INFORMATION
  Report Type: 
  Country: None (occurrence: None)
  Receive Date: 20061005
  Receipt Date: 20060926
  Transmission Date: 20070319
  Serious: Yes (Other)
  Sender: FDA-Public Use
  Company Number: 2006117059

PATIENT
  Age: 57 Year
  Sex: Male
  Weight: 94.3482 kg

DRUGS (17)
  1. LIPITOR [Suspect]
     Indication: BLOOD CHOLESTEROL INCREASED
     Dosage: 20 MG (20 MG, 1 IN 1 D), ORAL
     Route: 048
     Dates: start: 19980101
  2. INSULIN (INSULIN) [Concomitant]
  3. INSULIN LISPRO                                       (INSULIN LISPRO) [Concomitant]
  4. ACIPHEX [Concomitant]
  5. LOTENSIN [Concomitant]
  6. TRICOR [Concomitant]
  7. PLAVIX [Concomitant]
  8. ASPIRIN [Concomitant]
  9. VITAMIN E [Concomitant]
  10. VITAMIN C (VITAMIN C) [Concomitant]
  11. VITAMIN B12 [Concomitant]
  12. CHROMIUM                (CHROMIUM) [Concomitant]
  13. METHYLSULFONYLMETHANE                    (METHYLSULFONYLMETHANE) [Concomitant]
  14. FLAXSEED OIL                   (LINSEED OIL) [Concomitant]
  15. MAGNESIUM (MAGNESIUM) [Concomitant]
  16. ECHINACEA (ECHINACEA) [Concomitant]
  17. GRAPE SEED EXTRACT                   (VITIS VINIFERA EXTRACT) [Concomitant]

REACTIONS (2)
  - EPSTEIN-BARR VIRUS INFECTION [None]
  - WEIGHT DECREASED [None]
